FAERS Safety Report 8511309-4 (Version None)
Quarter: 2012Q3

REPORT INFORMATION
  Report Type: 
  Country: None (occurrence: None)
  Receive Date: 20120716
  Receipt Date: 20120703
  Transmission Date: 20120928
  Serious: No
  Sender: FDA-Public Use
  Company Number: US-ASTRAZENECA-2012SE45820

PATIENT
  Age: 51 Year
  Sex: Female

DRUGS (1)
  1. SEROQUEL [Suspect]
     Indication: SLEEP DISORDER
     Route: 048

REACTIONS (7)
  - INSOMNIA [None]
  - ANXIETY [None]
  - DEPRESSION [None]
  - OFF LABEL USE [None]
  - PANIC ATTACK [None]
  - RESTLESSNESS [None]
  - DRUG DOSE OMISSION [None]
